FAERS Safety Report 5742134-5 (Version None)
Quarter: 2008Q2

REPORT INFORMATION
  Report Type: 
  Country: None (occurrence: None)
  Receive Date: 20080519
  Receipt Date: 20080512
  Transmission Date: 20081010
  Serious: Yes (Death)
  Sender: FDA-Public Use
  Company Number: US-BRISTOL-MYERS SQUIBB COMPANY-13576731

PATIENT
  Age: 34 Year
  Sex: Female

DRUGS (13)
  1. DEFINITY [Suspect]
  2. IBUPROFEN [Suspect]
  3. FAMOTIDINE [Suspect]
  4. FERROUS SULFATE TAB [Suspect]
  5. CEFTRIAXONE SODIUM [Suspect]
  6. AZITHROMYCIN [Suspect]
  7. HEPARIN [Suspect]
  8. LIDOCAINE [Suspect]
  9. NOREPINEPHRINE [Suspect]
  10. SENOKOT [Suspect]
  11. VANCOMYCIN HCL [Suspect]
  12. VECURONIUM BROMIDE [Suspect]
  13. PIPERACILLIN + TAZOBACTUM [Suspect]

REACTIONS (4)
  - BRADYCARDIA [None]
  - CARDIAC ARREST [None]
  - CARDIAC FAILURE [None]
  - PULMONARY MASS [None]
